FAERS Safety Report 4696862-3 (Version None)
Quarter: 2005Q2

REPORT INFORMATION
  Report Type: 
  Country: None (occurrence: None)
  Receive Date: 20050620
  Receipt Date: 20050607
  Transmission Date: 20051028
  Serious: Yes (Other)
  Sender: FDA-Public Use
  Company Number: IE-2005-009935

PATIENT
  Age: 22 Year
  Sex: Female

DRUGS (3)
  1. MIRENA [Suspect]
     Dosage: 20  UG/DAY, CONT, INTRA-UTERINE
     Route: 015
     Dates: start: 20020502
  2. LANSOPRAZOLE [Concomitant]
  3. LOSEC ( OMEPRAZOLE MAGNESIUM) [Concomitant]

REACTIONS (6)
  - AFFECT LABILITY [None]
  - FLATULENCE [None]
  - LIBIDO DECREASED [None]
  - MENORRHAGIA [None]
  - NAUSEA [None]
  - WEIGHT INCREASED [None]
